FAERS Safety Report 16156010 (Version 4)
Quarter: 2019Q4

REPORT INFORMATION
  Report Type: Report from Study
  Country: US (occurrence: US)
  Receive Date: 20190404
  Receipt Date: 20191113
  Transmission Date: 20200122
  Serious: Yes (Other)
  Sender: FDA-Public Use
  Company Number: PHEH2019US014426

PATIENT
  Sex: Female

DRUGS (1)
  1. ENTRESTO [Suspect]
     Active Substance: SACUBITRIL\VALSARTAN
     Indication: PRODUCT USED FOR UNKNOWN INDICATION
     Route: 048

REACTIONS (10)
  - Dyspnoea [Unknown]
  - Sinus disorder [Unknown]
  - Wheezing [Unknown]
  - Pericardial effusion [Unknown]
  - Productive cough [Unknown]
  - Abdominal distension [Unknown]
  - Hyperhidrosis [Unknown]
  - Ejection fraction decreased [Unknown]
  - Feeling abnormal [Unknown]
  - Cough [Unknown]
